FAERS Safety Report 14575303 (Version 1)
Quarter: 2018Q1

REPORT INFORMATION
  Report Type: Spontaneous
  Country: US (occurrence: US)
  Receive Date: 20180227
  Receipt Date: 20180227
  Transmission Date: 20180509
  Serious: No
  Sender: FDA-Public Use
  Company Number: US-ROCHE-1962823

PATIENT
  Age: 55 Year
  Sex: Female
  Weight: 79.45 kg

DRUGS (2)
  1. XOLAIR [Suspect]
     Active Substance: OMALIZUMAB
     Indication: SINUS DISORDER
     Route: 058
     Dates: start: 2016, end: 201705
  2. XOLAIR [Suspect]
     Active Substance: OMALIZUMAB
     Indication: FUNGAL INFECTION

REACTIONS (1)
  - Pain in extremity [Not Recovered/Not Resolved]

NARRATIVE: CASE EVENT DATE: 201703
